FAERS Safety Report 8619870-6 (Version None)
Quarter: 2012Q3

REPORT INFORMATION
  Report Type: 
  Country: None (occurrence: None)
  Receive Date: 20120824
  Receipt Date: 20120822
  Transmission Date: 20120928
  Serious: No
  Sender: FDA-Public Use
  Company Number: US-PFIZER INC-2012207074

PATIENT
  Age: 64 Year
  Sex: Male
  Weight: 109.3 kg

DRUGS (8)
  1. PROPRANOLOL [Concomitant]
     Dosage: 40 MG, UNK
  2. CELEBREX [Suspect]
     Indication: ARTHRITIS
     Dosage: 200 MG, AS NEEDED
     Route: 048
     Dates: start: 20120731, end: 20120803
  3. VITAMIN D [Concomitant]
     Dosage: UNK
  4. GLUCOSAMINE [Concomitant]
     Dosage: UNK
  5. VITAMIN B COMPLEX CAP [Concomitant]
     Dosage: UNK
  6. DILTIAZEM [Concomitant]
     Dosage: 30 MG, UNK
  7. MAGNESIUM [Concomitant]
     Dosage: 200 MG, UNK
  8. TRAMADOL [Concomitant]
     Dosage: 50 MG, UNK

REACTIONS (1)
  - MUSCLE SPASMS [None]
